FAERS Safety Report 7136937-2 (Version None)
Quarter: 2010Q4

REPORT INFORMATION
  Report Type: 
  Country: None (occurrence: None)
  Receive Date: 20101119
  Receipt Date: 20101112
  Transmission Date: 20110411
  Serious: Yes (Other)
  Sender: FDA-Public Use
  Company Number: 2010SP060043

PATIENT
  Age: 15 Year
  Sex: Female

DRUGS (2)
  1. DESLORATADINE [Suspect]
     Indication: URTICARIA THERMAL
     Dosage: 5 MG;QD;PO ; 20 MG;QD;PO
     Route: 048
  2. DESLORATADINE [Suspect]
     Indication: URTICARIA THERMAL
     Dosage: 5 MG;QD;PO ; 20 MG;QD;PO
     Route: 048

REACTIONS (6)
  - ARRHYTHMIA [None]
  - DIZZINESS [None]
  - FATIGUE [None]
  - HEADACHE [None]
  - SOMNOLENCE [None]
  - TACHYCARDIA [None]
